FAERS Safety Report 10627205 (Version 1)
Quarter: 2014Q4

REPORT INFORMATION
  Report Type: Spontaneous
  Country: GR (occurrence: GR)
  Receive Date: 20141204
  Receipt Date: 20141204
  Transmission Date: 20150529
  Serious: Yes (Other)
  Sender: FDA-Public Use
  Company Number: GR-TAKEDA-2014TUS013192

PATIENT
  Sex: Male

DRUGS (1)
  1. COLCHICINE. [Suspect]
     Active Substance: COLCHICINE
     Indication: FAMILIAL MEDITERRANEAN FEVER
     Dosage: UNK
     Route: 065

REACTIONS (9)
  - Pneumonia [Unknown]
  - Familial mediterranean fever [Recovered/Resolved]
  - Serum amyloid A protein increased [Unknown]
  - C-reactive protein increased [Unknown]
  - Hypogammaglobulinaemia [Recovered/Resolved]
  - Immunoglobulins decreased [Recovered/Resolved]
  - Respiratory tract infection [Unknown]
  - Lymphopenia [Recovered/Resolved]
  - Drug administered to patient of inappropriate age [Recovered/Resolved]
